FAERS Safety Report 10233221 (Version 1)
Quarter: 2014Q2

REPORT INFORMATION
  Report Type: Spontaneous
  Country: US (occurrence: US)
  Receive Date: 20140612
  Receipt Date: 20140612
  Transmission Date: 20141212
  Serious: No
  Sender: FDA-Public Use
  Company Number: US-MALLINCKRODT-T201402333

PATIENT
  Sex: Male

DRUGS (1)
  1. XARTEMIS XR [Suspect]
     Indication: PAIN
     Dosage: 1 TABLET, BID
     Route: 065

REACTIONS (1)
  - Drug effect delayed [Recovered/Resolved]
